FAERS Safety Report 12777962 (Version 1)
Quarter: 2016Q3

REPORT INFORMATION
  Report Type: Spontaneous
  Country: US (occurrence: US)
  Receive Date: 20160924
  Receipt Date: 20160924
  Transmission Date: 20161109
  Serious: No
  Sender: FDA-Public Use
  Company Number: US-JAZZ-2016-US-010581

PATIENT
  Sex: Male

DRUGS (35)
  1. TESTOPEL [Concomitant]
     Active Substance: TESTOSTERONE
  2. XYREM [Suspect]
     Active Substance: SODIUM OXYBATE
     Indication: CATAPLEXY
     Dosage: DOSE ADJUSTMENTS
     Route: 048
     Dates: start: 201501, end: 201510
  3. FENOFIBRATE. [Suspect]
     Active Substance: FENOFIBRATE
     Indication: PRODUCT USED FOR UNKNOWN INDICATION
  4. BECLOMETHASONE [Concomitant]
     Active Substance: BECLOMETHASONE
  5. MONTELUKAST SODIUM. [Concomitant]
     Active Substance: MONTELUKAST SODIUM
  6. XARELTO [Concomitant]
     Active Substance: RIVAROXABAN
  7. FISH OIL [Concomitant]
     Active Substance: FISH OIL
  8. XYREM [Suspect]
     Active Substance: SODIUM OXYBATE
     Indication: NARCOLEPSY
     Dosage: 2.25 G, BID
     Route: 048
     Dates: start: 201501, end: 201501
  9. MAXALT [Concomitant]
     Active Substance: RIZATRIPTAN BENZOATE
  10. VERAPAMIL [Concomitant]
     Active Substance: VERAPAMIL HYDROCHLORIDE
  11. METOPROLOL SUCCINATE. [Concomitant]
     Active Substance: METOPROLOL SUCCINATE
  12. VITAMIN E [Concomitant]
     Active Substance: .ALPHA.-TOCOPHEROL
  13. ASPIRIN. [Concomitant]
     Active Substance: ASPIRIN
  14. KETOCONAZOLE. [Concomitant]
     Active Substance: KETOCONAZOLE
  15. VITAMIN B COMPLEX [Concomitant]
     Active Substance: CYANOCOBALAMIN\DEXPANTHENOL\NIACINAMIDE\PYRIDOXINE HYDROCHLORIDE\RIBOFLAVIN 5^-PHOSPHATE SODIUM\THIAMINE HYDROCHLORIDE\VITAMIN B COMPLEX
  16. GLUCOSAMINE AND CHONDROITIN [Concomitant]
     Active Substance: CHONDROITIN SULFATE (BOVINE)\GLUCOSAMINE HYDROCHLORIDE
  17. MIRAPEX [Concomitant]
     Active Substance: PRAMIPEXOLE DIHYDROCHLORIDE
  18. CLOTRIMAZOLE AND BETAMETHASONE DIPROPIONATE [Concomitant]
     Active Substance: BETAMETHASONE\BETAMETHASONE DIPROPIONATE\CLOTRIMAZOLE
  19. DEXILANT [Suspect]
     Active Substance: DEXLANSOPRAZOLE
     Indication: PRODUCT USED FOR UNKNOWN INDICATION
  20. DESONIDE. [Concomitant]
     Active Substance: DESONIDE
  21. PROVIGIL [Concomitant]
     Active Substance: MODAFINIL
  22. XYREM [Suspect]
     Active Substance: SODIUM OXYBATE
     Dosage: 3.75 G, BID
     Route: 048
     Dates: start: 201510
  23. SUCRALFATE. [Concomitant]
     Active Substance: SUCRALFATE
  24. CEPHALEXIN. [Concomitant]
     Active Substance: CEPHALEXIN
  25. BETAMETHASONE DIPROPIONATE. [Concomitant]
     Active Substance: BETAMETHASONE DIPROPIONATE
  26. NORCO [Concomitant]
     Active Substance: ACETAMINOPHEN\HYDROCODONE BITARTRATE
  27. COQ10 [Concomitant]
     Active Substance: UBIDECARENONE
  28. MULTIVITAMINS [Concomitant]
     Active Substance: VITAMINS
  29. SIMVASTATIN. [Concomitant]
     Active Substance: SIMVASTATIN
  30. CLOTRIMAZOLE. [Concomitant]
     Active Substance: CLOTRIMAZOLE
  31. HYDROCORTISONE. [Concomitant]
     Active Substance: HYDROCORTISONE
  32. FLUTICASONE PROPIONATE. [Concomitant]
     Active Substance: FLUTICASONE PROPIONATE
  33. ACIPHEX [Concomitant]
     Active Substance: RABEPRAZOLE SODIUM
  34. LISINOPRIL. [Concomitant]
     Active Substance: LISINOPRIL
  35. METOPROLOL TARTRATE. [Concomitant]
     Active Substance: METOPROLOL TARTRATE

REACTIONS (11)
  - Pain [Not Recovered/Not Resolved]
  - Pre-existing condition improved [Unknown]
  - Renal cyst [Not Recovered/Not Resolved]
  - Dysphonia [Not Recovered/Not Resolved]
  - Depressed mood [Unknown]
  - Therapeutic response unexpected [Unknown]
  - Bronchial disorder [Not Recovered/Not Resolved]
  - Drug ineffective [Unknown]
  - Chest pain [Not Recovered/Not Resolved]
  - Myalgia [Unknown]
  - Irritability [Unknown]
